FAERS Safety Report 6090937-2 (Version None)
Quarter: 2009Q1

REPORT INFORMATION
  Report Type: 
  Country: None (occurrence: None)
  Receive Date: 20090220
  Receipt Date: 20090210
  Transmission Date: 20090719
  Serious: Yes (Other)
  Sender: FDA-Public Use
  Company Number: MC200900032

PATIENT
  Age: 62 Year
  Sex: Female

DRUGS (10)
  1. ANGIOMAX [Suspect]
     Indication: PERCUTANEOUS CORONARY INTERVENTION
     Dosage: 8 MI, BOLUS; INTRAVENOUS
     Route: 042
     Dates: start: 20090203, end: 20090203
  2. ANGIOMAX [Suspect]
     Dosage: 19 ML, HR, INTRAVENOUS,
     Dates: start: 20090203, end: 20090203
  3. ANGIOMAX [Suspect]
     Dosage: 19 ML, HR, INTRAVENOUS,
     Dates: start: 20090203
  4. ADVAIR DISKUS 100/50 [Concomitant]
  5. BENADRYL [Concomitant]
  6. VERSED [Concomitant]
  7. PEPCID [Concomitant]
  8. UNSPECIFIED [Concomitant]
  9. CATAPRES [Concomitant]
  10. ISOVUE 370 (OPAMIDOL) [Concomitant]

REACTIONS (2)
  - OPERATIVE HAEMORRHAGE [None]
  - URTICARIA [None]
